FAERS Safety Report 11114673 (Version 1)
Quarter: 2015Q2

REPORT INFORMATION
  Report Type: Spontaneous
  Country: PL (occurrence: None)
  Receive Date: 20150512
  Receipt Date: 20150512
  Transmission Date: 20150821
  Serious: Yes (Hospitalization)
  Sender: FDA-Public Use
  Company Number: FK201502171

PATIENT
  Age: 28 Year
  Sex: Female

DRUGS (7)
  1. PROCARBAZINE (PROCARBAZINE) [Suspect]
     Active Substance: PROCARBAZINE
     Indication: HODGKIN^S DISEASE
  2. ETOPOSIDE (MANUFACTURER UNKNOWN) (ETOPOSIDE) (ETOPOSIDE) [Suspect]
     Active Substance: ETOPOSIDE
     Indication: HODGKIN^S DISEASE
  3. PREDNISONE (PREDNISONE) [Suspect]
     Active Substance: PREDNISONE
     Indication: HODGKIN^S DISEASE
  4. CYCLOPHOSPHAMIDE. [Suspect]
     Active Substance: CYCLOPHOSPHAMIDE
     Indication: HODGKIN^S DISEASE
  5. DOXORUBICIN [Suspect]
     Active Substance: DOXORUBICIN
     Indication: HODGKIN^S DISEASE
  6. VINCRISTINE (VINCRISTINE) [Suspect]
     Active Substance: VINCRISTINE
     Indication: HODGKIN^S DISEASE
  7. BLEOMYCIN [Suspect]
     Active Substance: BLEOMYCIN SULFATE
     Indication: HODGKIN^S DISEASE

REACTIONS (12)
  - Coagulopathy [None]
  - Multi-organ failure [None]
  - Necrotising gastritis [None]
  - Thrombocytopenia [None]
  - Hypovolaemia [None]
  - Post procedural complication [None]
  - Hepatic function abnormal [None]
  - Procedural complication [None]
  - Staphylococcus test positive [None]
  - Pneumonia [None]
  - Neutropenia [None]
  - Septic shock [None]
